FAERS Safety Report 9105134 (Version 1)
Quarter: 2013Q1

REPORT INFORMATION
  Report Type: Spontaneous
  Country: GB (occurrence: GB)
  Receive Date: 20130219
  Receipt Date: 20130219
  Transmission Date: 20140127
  Serious: Yes (Other)
  Sender: FDA-Public Use
  Company Number: GB-ROCHE-1192629

PATIENT
  Age: 30 Year
  Sex: Male

DRUGS (5)
  1. ROACTEMRA [Suspect]
     Indication: RHEUMATOID ARTHRITIS
     Route: 042
     Dates: start: 20121107, end: 20130102
  2. MELOXICAM [Concomitant]
     Indication: RHEUMATOID ARTHRITIS
     Route: 048
  3. METHOTREXATE [Concomitant]
     Indication: RHEUMATOID ARTHRITIS
     Route: 048
  4. PREDNISOLONE [Concomitant]
     Indication: RHEUMATOID ARTHRITIS
     Route: 048
  5. RISEDRONATE [Concomitant]
     Indication: BONE DISORDER
     Route: 048

REACTIONS (3)
  - Arthralgia [Recovered/Resolved]
  - Costochondritis [Recovered/Resolved]
  - Mucosal inflammation [Recovered/Resolved]
